FAERS Safety Report 23358932 (Version 4)
Quarter: 2024Q1

REPORT INFORMATION
  Report Type: Spontaneous
  Country: US (occurrence: US)
  Receive Date: 20240102
  Receipt Date: 20240314
  Transmission Date: 20240410
  Serious: Yes (Death, Hospitalization, Other)
  Sender: FDA-Public Use
  Company Number: US-PFIZER INC-PV202300209964

PATIENT
  Age: 60 Year
  Sex: Female
  Weight: 63.492 kg

DRUGS (3)
  1. RUXIENCE [Suspect]
     Active Substance: RITUXIMAB-PVVR
     Indication: Rheumatoid arthritis
     Dosage: ? MG INFUSION EVERY 4 MONTHS
     Dates: start: 201906, end: 202306
  2. METHOTREXATE SODIUM [Concomitant]
     Active Substance: METHOTREXATE SODIUM
     Dosage: UNK
     Dates: start: 201706
  3. ACTHAR [Concomitant]
     Active Substance: CORTICOTROPIN
     Dosage: UNK
     Dates: start: 201906

REACTIONS (4)
  - Pneumonia [Fatal]
  - Pulmonary embolism [Fatal]
  - Pulmonary fibrosis [Fatal]
  - COVID-19 [Fatal]
